FAERS Safety Report 24859182 (Version 1)
Quarter: 2025Q1

REPORT INFORMATION
  Report Type: Spontaneous
  Country: DE (occurrence: DE)
  Receive Date: 20250118
  Receipt Date: 20250118
  Transmission Date: 20250408
  Serious: Yes (Hospitalization, Other)
  Sender: AZURITY PHARMACEUTICALS
  Company Number: DE-AZURITY PHARMACEUTICALS, INC.-AZR202501-000360

PATIENT
  Age: 34 Year
  Sex: Female

DRUGS (6)
  1. TRIPTORELIN [Suspect]
     Active Substance: TRIPTORELIN
     Indication: Assisted reproductive technology
     Route: 065
  2. UROFOLLITROPIN [Suspect]
     Active Substance: UROFOLLITROPIN
     Indication: Assisted reproductive technology
     Route: 065
  3. GONADOTROPHIN, CHORIONIC [Suspect]
     Active Substance: GONADOTROPHIN, CHORIONIC
     Indication: Assisted reproductive technology
     Route: 065
  4. PROGESTERONE [Suspect]
     Active Substance: PROGESTERONE
     Indication: Assisted reproductive technology
     Route: 065
  5. PROGESTERONE [Suspect]
     Active Substance: PROGESTERONE
     Indication: Assisted reproductive technology
     Route: 065
  6. ESTRADIOL VALERATE [Suspect]
     Active Substance: ESTRADIOL VALERATE
     Indication: Assisted reproductive technology
     Route: 065

REACTIONS (8)
  - Ovarian hyperstimulation syndrome [Recovered/Resolved]
  - Ascites [Recovered/Resolved]
  - Abdominal pain [Recovered/Resolved]
  - Diarrhoea [Recovered/Resolved]
  - Nausea [Recovered/Resolved]
  - Vomiting [Recovered/Resolved]
  - Weight increased [Recovered/Resolved]
  - Dysuria [Recovered/Resolved]

NARRATIVE: CASE EVENT DATE: 20240905
